FAERS Safety Report 15263989 (Version 1)
Quarter: 2018Q3

REPORT INFORMATION
  Report Type: Spontaneous
  Country: FI (occurrence: FI)
  Receive Date: 20180810
  Receipt Date: 20180810
  Transmission Date: 20181010
  Serious: Yes (Death, Life-Threatening, Hospitalization, Other)
  Sender: FDA-Public Use
  Company Number: FI-ACCORD-070625

PATIENT
  Age: 27 Year
  Sex: Female

DRUGS (1)
  1. AMITRIPTYLINE [Suspect]
     Active Substance: AMITRIPTYLINE
     Route: 048

REACTIONS (4)
  - Seizure [Fatal]
  - Suicide attempt [Fatal]
  - Toxicity to various agents [Fatal]
  - Circulatory collapse [Fatal]
